FAERS Safety Report 19651660 (Version 1)
Quarter: 2021Q3

REPORT INFORMATION
  Report Type: Spontaneous
  Country: CN (occurrence: CN)
  Receive Date: 20210803
  Receipt Date: 20210803
  Transmission Date: 20211014
  Serious: Yes (Hospitalization)
  Sender: FDA-Public Use
  Company Number: CN-UCBSA-2021036317

PATIENT
  Age: 41 Year
  Sex: Female
  Weight: 50 kg

DRUGS (2)
  1. LOXONIN [Concomitant]
     Active Substance: LOXOPROFEN SODIUM
     Indication: HEADACHE
     Dosage: 60 MILLIGRAM, 3X/DAY (TID)
     Dates: start: 20210703, end: 20210712
  2. KEPPRA [Suspect]
     Active Substance: LEVETIRACETAM
     Indication: PROPHYLAXIS
     Dosage: 0.5 GRAM, ONCE DAILY (QD)
     Route: 048
     Dates: start: 20210628, end: 20210712

REACTIONS (2)
  - Leukopenia [Recovering/Resolving]
  - Product use issue [Unknown]

NARRATIVE: CASE EVENT DATE: 20210628
